FAERS Safety Report 7573958-X (Version None)
Quarter: 2011Q2

REPORT INFORMATION
  Report Type: 
  Country: None (occurrence: None)
  Receive Date: 20110627
  Receipt Date: 20110617
  Transmission Date: 20111010
  Serious: Yes (Hospitalization)
  Sender: FDA-Public Use
  Company Number: US-ALEXION-A201100438

PATIENT
  Sex: Male

DRUGS (3)
  1. ALDACTONE [Suspect]
     Indication: BUDD-CHIARI SYNDROME
     Dosage: UNK
  2. SOLIRIS [Suspect]
     Dosage: 600 MG, QW
     Route: 042
     Dates: start: 20110301
  3. SOLIRIS [Suspect]
     Indication: PAROXYSMAL NOCTURNAL HAEMOGLOBINURIA
     Dosage: 1200 MG, SINGLE
     Route: 042
     Dates: start: 20110301

REACTIONS (23)
  - HYPERHIDROSIS [None]
  - PAIN IN EXTREMITY [None]
  - DIPLOPIA [None]
  - FEAR [None]
  - GAIT DISTURBANCE [None]
  - SPEECH DISORDER [None]
  - ABDOMINAL PAIN [None]
  - CONDITION AGGRAVATED [None]
  - OEDEMA PERIPHERAL [None]
  - DYSARTHRIA [None]
  - MENTAL IMPAIRMENT [None]
  - DIARRHOEA [None]
  - WEIGHT DECREASED [None]
  - AMNESIA [None]
  - ARTHROPATHY [None]
  - DECREASED APPETITE [None]
  - STRESS [None]
  - TREMOR [None]
  - ASTHENIA [None]
  - DIZZINESS [None]
  - FATIGUE [None]
  - PAIN [None]
  - PAROXYSMAL NOCTURNAL HAEMOGLOBINURIA [None]
